FAERS Safety Report 8154636-5 (Version None)
Quarter: 2012Q1

REPORT INFORMATION
  Report Type: 
  Country: None (occurrence: None)
  Receive Date: 20120221
  Receipt Date: 20120217
  Transmission Date: 20120608
  Serious: Yes (Other)
  Sender: FDA-Public Use
  Company Number: VE-PFIZER INC-2012038195

PATIENT
  Age: 54 Year
  Sex: Male

DRUGS (3)
  1. VALSARTAN  AND HYDROCHLOROTHIAZIDE [Concomitant]
     Indication: HYPERTENSION
     Dosage: 80 MG, 1X/DAY
     Route: 048
  2. LIPITOR [Suspect]
     Indication: VARICOSE VEIN
     Dosage: 80 MG, 1X/DAY
     Route: 048
     Dates: start: 20100101
  3. NEXIUM [Concomitant]
     Dosage: UNK
     Route: 048

REACTIONS (1)
  - GASTRIC BYPASS [None]
